FAERS Safety Report 9454342 (Version 1)
Quarter: 2013Q3

REPORT INFORMATION
  Report Type: Report from Study
  Country: US (occurrence: US)
  Receive Date: 20130812
  Receipt Date: 20130812
  Transmission Date: 20140515
  Serious: Yes (Other)
  Sender: FDA-Public Use
  Company Number: PHEH2013US005862

PATIENT
  Age: 25 Year
  Sex: Female
  Weight: 71.66 kg

DRUGS (2)
  1. GILENYA [Suspect]
     Indication: RELAPSING-REMITTING MULTIPLE SCLEROSIS
     Dosage: 0.5 MG, QD
     Route: 048
     Dates: start: 20130201
  2. NSAID^S [Concomitant]

REACTIONS (7)
  - Blindness [Unknown]
  - Facial spasm [Unknown]
  - Chest discomfort [Recovered/Resolved]
  - Balance disorder [Unknown]
  - Palpitations [Recovered/Resolved]
  - Dyspnoea [Recovered/Resolved]
  - Headache [Not Recovered/Not Resolved]
